FAERS Safety Report 6084475-0 (Version None)
Quarter: 2009Q1

REPORT INFORMATION
  Report Type: 
  Country: None (occurrence: None)
  Receive Date: 20090217
  Receipt Date: 20090205
  Transmission Date: 20090719
  Serious: Yes (Life-Threatening, Hospitalization)
  Sender: FDA-Public Use
  Company Number: GXKR2009DE01518

PATIENT
  Age: 82 Year
  Sex: Male
  Weight: 77 kg

DRUGS (8)
  1. METOPROLOL SUCCINATE [Suspect]
     Indication: HYPERTENSION
     Dosage: 95 MG, BID
  2. ACTRAPID NOVOLET                (INSULIN HUMAN) [Suspect]
     Indication: TYPE 2 DIABETES MELLITUS
     Dosage: 16 IU, QD, SUBCUTANEOUS
     Route: 058
  3. ATACAND [Suspect]
     Indication: HYPERTENSION
     Dosage: 32 MG, OQ
  4. LERCANIDIPINE [Concomitant]
  5. DOXAZOSIN      (DOXAZOSIN) [Concomitant]
  6. HYDROCHLOROTHIAZIDE [Concomitant]
  7. MOXONIDINE (MOXONIDINE) [Concomitant]
  8. SIMVASTATIN [Concomitant]

REACTIONS (2)
  - CONVULSION [None]
  - SHOCK HYPOGLYCAEMIC [None]
